FAERS Safety Report 4587901-9 (Version None)
Quarter: 2005Q1

REPORT INFORMATION
  Report Type: 
  Country: None (occurrence: None)
  Receive Date: 20050219
  Receipt Date: 20050209
  Transmission Date: 20050727
  Serious: Yes (Other)
  Sender: FDA-Public Use
  Company Number: PHBS2005GB02167

PATIENT
  Age: 62 Year
  Sex: Female

DRUGS (1)
  1. ZOLEDRONIC ACID [Suspect]
     Indication: HYPERGAMMAGLOBULINAEMIA BENIGN MONOCLONAL
     Dosage: 4 MG, ONCE/SINGLE
     Route: 042

REACTIONS (9)
  - CONJUNCTIVAL OEDEMA [None]
  - CONJUNCTIVITIS [None]
  - CORNEAL DEPOSITS [None]
  - EYE PAIN [None]
  - EYELID OEDEMA [None]
  - IRIS ADHESIONS [None]
  - UVEITIS [None]
  - VISION BLURRED [None]
  - VISUAL ACUITY REDUCED [None]
